FAERS Safety Report 4968491-5 (Version None)
Quarter: 2006Q2

REPORT INFORMATION
  Report Type: 
  Country: None (occurrence: None)
  Receive Date: 20060410
  Receipt Date: 20050630
  Transmission Date: 20061013
  Serious: Yes (Hospitalization, Disabling)
  Sender: FDA-Public Use
  Company Number: US-MERCK-0507USA00179

PATIENT
  Age: 54 Year
  Sex: Female
  Weight: 81 kg

DRUGS (3)
  1. VIOXX [Suspect]
     Indication: MYALGIA
     Route: 048
     Dates: start: 20040629, end: 20040702
  2. ACIPHEX [Concomitant]
     Route: 065
  3. PHOSLO [Concomitant]
     Route: 065

REACTIONS (10)
  - ABSCESS [None]
  - BRONCHITIS [None]
  - CEREBROVASCULAR ACCIDENT [None]
  - DRUG HYPERSENSITIVITY [None]
  - FALL [None]
  - MALAISE [None]
  - PNEUMONIA [None]
  - PYREXIA [None]
  - RENAL FAILURE CHRONIC [None]
  - SKIN LACERATION [None]
